FAERS Safety Report 9202351 (Version 1)
Quarter: 2013Q1

REPORT INFORMATION
  Report Type: Spontaneous
  Country: US (occurrence: None)
  Receive Date: 20130329
  Receipt Date: 20130329
  Transmission Date: 20140127
  Serious: No
  Sender: FDA-Public Use
  Company Number: None

PATIENT
  Age: 53 Year
  Sex: Female
  Weight: 66.68 kg

DRUGS (1)
  1. CYCLOBEN [Suspect]
     Indication: MUSCLE SPASMS
     Dates: start: 20121022, end: 20130207

REACTIONS (2)
  - Pain in extremity [None]
  - Drug effect incomplete [None]
